FAERS Safety Report 9372464 (Version 1)
Quarter: 2013Q2

REPORT INFORMATION
  Report Type: Spontaneous
  Country: US (occurrence: US)
  Receive Date: 20130627
  Receipt Date: 20130627
  Transmission Date: 20140414
  Serious: No
  Sender: FDA-Public Use
  Company Number: US-MYLANLABS-2012S1025197

PATIENT
  Age: 45 Year
  Sex: Male
  Weight: 86.18 kg

DRUGS (5)
  1. CLOZAPINE TABLETS [Suspect]
     Indication: SCHIZOPHRENIA
     Route: 048
     Dates: start: 1992
  2. LIPITOR [Concomitant]
     Indication: BLOOD CHOLESTEROL INCREASED
     Route: 048
     Dates: start: 2007
  3. ULTRAM [Concomitant]
     Indication: PAIN
     Route: 048
     Dates: start: 2008
  4. ATIVAN [Concomitant]
     Indication: ANXIETY
     Route: 048
     Dates: start: 2008
  5. DULCOLAX (BISACODYL) [Concomitant]
     Indication: CONSTIPATION
     Route: 048
     Dates: start: 2008

REACTIONS (2)
  - Abdominal pain upper [Not Recovered/Not Resolved]
  - Abdominal distension [Not Recovered/Not Resolved]
